FAERS Safety Report 6481255-9 (Version None)
Quarter: 2009Q4

REPORT INFORMATION
  Report Type: 
  Country: None (occurrence: None)
  Receive Date: 20091208
  Receipt Date: 20091204
  Transmission Date: 20100525
  Serious: Yes (Other)
  Sender: FDA-Public Use
  Company Number: A0818247B

PATIENT
  Sex: Male
  Weight: 53 kg

DRUGS (3)
  1. LAPATINIB [Suspect]
     Dosage: 1500MG PER DAY
     Route: 048
     Dates: start: 20091006
  2. CISPLATIN [Suspect]
     Route: 042
  3. RADIOTHERAPY [Suspect]
     Dosage: 2GY VARIABLE DOSE
     Route: 061
     Dates: start: 20091021

REACTIONS (1)
  - LYMPHOPENIA [None]
